FAERS Safety Report 10287278 (Version 4)
Quarter: 2015Q4

REPORT INFORMATION
  Report Type: Spontaneous
  Country: US (occurrence: US)
  Receive Date: 20140709
  Receipt Date: 20151204
  Transmission Date: 20160304
  Serious: Yes (Other)
  Sender: FDA-Public Use
  Company Number: US-PFIZER INC-2014187146

PATIENT
  Age: 42 Year
  Sex: Female
  Weight: 109 kg

DRUGS (2)
  1. DILANTIN [Suspect]
     Active Substance: PHENYTOIN
     Indication: SEIZURE
     Dosage: 300 MG, 2X/DAY (300 MG IN THE MORNING,300 MG IN THE EVENING/100 MG CAPSULES,3 CAPSULES IN THE MOUTH)
     Route: 048
     Dates: start: 2007, end: 201405
  2. DEPAKOTE [Suspect]
     Active Substance: DIVALPROEX SODIUM
     Indication: SEIZURE
     Dosage: UNK, 2X/DAY (2 TWICE A DAY)
     Dates: start: 2007

REACTIONS (3)
  - Seizure [Not Recovered/Not Resolved]
  - Impaired work ability [Unknown]
  - Impaired driving ability [Unknown]

NARRATIVE: CASE EVENT DATE: 2014
